FAERS Safety Report 8480464-7 (Version None)
Quarter: 2012Q3

REPORT INFORMATION
  Report Type: 
  Country: None (occurrence: None)
  Receive Date: 20120702
  Receipt Date: 20120619
  Transmission Date: 20120928
  Serious: Yes (Hospitalization)
  Sender: FDA-Public Use
  Company Number: US-BIOGENIDEC-2012BI013016

PATIENT
  Age: 55 Year
  Sex: Female

DRUGS (4)
  1. PHENOBARBITAL TAB [Concomitant]
     Indication: CONVULSION
     Route: 048
  2. AVONEX [Suspect]
     Indication: MULTIPLE SCLEROSIS
     Route: 030
     Dates: start: 20080910, end: 20100623
  3. AVONEX [Suspect]
     Indication: SECONDARY PROGRESSIVE MULTIPLE SCLEROSIS
     Route: 030
     Dates: start: 20080910, end: 20100623
  4. PHENOBARBITAL TAB [Concomitant]
     Route: 048

REACTIONS (4)
  - PYREXIA [None]
  - LUNG LOBECTOMY [None]
  - MALAISE [None]
  - INJECTION SITE REACTION [None]
